FAERS Safety Report 5061271-4 (Version None)
Quarter: 2006Q3

REPORT INFORMATION
  Report Type: 
  Country: None (occurrence: None)
  Receive Date: 20060720
  Receipt Date: 20060707
  Transmission Date: 20061208
  Serious: Yes (Other)
  Sender: FDA-Public Use
  Company Number: 2006069623

PATIENT
  Age: 29 Year
  Sex: Male
  Weight: 31 kg

DRUGS (5)
  1. UNASYN [Suspect]
     Indication: PNEUMONIA ASPIRATION
     Dosage: SEE IMAGE
     Route: 042
     Dates: start: 20060517, end: 20060501
  2. UNASYN [Suspect]
     Indication: PNEUMONIA ASPIRATION
     Dosage: SEE IMAGE
     Route: 042
     Dates: start: 20060424, end: 20060531
  3. DEPAKENE [Suspect]
     Indication: EPILEPSY
     Dosage: 600 MG (200 MG, 2 IN 1 D), INHALATION
     Route: 055
     Dates: start: 20060424
  4. PHENOBARBITAL TAB [Suspect]
     Indication: EPILEPSY
     Dosage: 30 MG (30 MG, 1 IN 1D)
     Dates: start: 20060424
  5. ZONISAMIDE [Suspect]
     Indication: EPILEPSY
     Dosage: 230 MG (115 MG, 2  IN 1 D)
     Dates: start: 20060424

REACTIONS (3)
  - CONVULSION [None]
  - DRUG INTERACTION [None]
  - DRUG LEVEL DECREASED [None]
